FAERS Safety Report 7423991-3 (Version None)
Quarter: 2011Q2

REPORT INFORMATION
  Report Type: 
  Country: None (occurrence: None)
  Receive Date: 20110419
  Receipt Date: 20110412
  Transmission Date: 20111010
  Serious: Yes (Hospitalization)
  Sender: FDA-Public Use
  Company Number: B0713994A

PATIENT
  Age: 26 Year
  Sex: Male

DRUGS (5)
  1. ZERIT [Suspect]
     Route: 065
     Dates: start: 20060501, end: 20090101
  2. EPIVIR [Suspect]
     Route: 065
     Dates: start: 20060501, end: 20090101
  3. KALETRA [Suspect]
     Route: 065
     Dates: start: 20060501, end: 20090101
  4. ATAZANAVIR [Concomitant]
     Indication: HIV INFECTION
     Route: 048
     Dates: start: 20090617
  5. COMBIVIR [Suspect]
     Indication: HIV INFECTION
     Route: 048
     Dates: start: 20090617, end: 20101018

REACTIONS (7)
  - ASTHENIA [None]
  - ANAEMIA [None]
  - BLOOD CHOLESTEROL INCREASED [None]
  - HIGH DENSITY LIPOPROTEIN INCREASED [None]
  - DIZZINESS [None]
  - LYMPHOMA [None]
  - BLOOD TRIGLYCERIDES INCREASED [None]
